APPROVED DRUG PRODUCT: ADVIL MIGRAINE LIQUI-GELS
Active Ingredient: IBUPROFEN
Strength: EQ 200MG FREE ACID AND POTASSIUM SALT
Dosage Form/Route: CAPSULE;ORAL
Application: N020402 | Product #002
Applicant: HALEON US HOLDINGS LLC
Approved: Mar 16, 2000 | RLD: Yes | RS: Yes | Type: OTC